FAERS Safety Report 20331938 (Version 1)
Quarter: 2022Q1

REPORT INFORMATION
  Report Type: Spontaneous
  Country: FR (occurrence: FR)
  Receive Date: 20220113
  Receipt Date: 20220113
  Transmission Date: 20220423
  Serious: Yes (Hospitalization)
  Sender: FDA-Public Use
  Company Number: None

PATIENT
  Age: 55 Year
  Sex: Male
  Weight: 60 kg

DRUGS (9)
  1. BEVACIZUMAB [Suspect]
     Active Substance: BEVACIZUMAB
     Indication: Hepatocellular carcinoma
     Dosage: 1200 MG/KG, EVERY 3 WEEKS
     Route: 041
     Dates: start: 20210517
  2. ATEZOLIZUMAB [Suspect]
     Active Substance: ATEZOLIZUMAB
     Indication: Hepatocellular carcinoma
     Dosage: 1200 MG/KG, EVERY 3 WEEKS
     Route: 041
     Dates: start: 20210517
  3. PANTOPRAZOLE [Concomitant]
     Active Substance: PANTOPRAZOLE
  4. PREDNISOLONE SODIUM METAZOATE [Concomitant]
     Active Substance: PREDNISOLONE SODIUM METAZOATE
  5. ALDACTONE [Concomitant]
     Active Substance: SPIRONOLACTONE
  6. FUROSEMIDE [Concomitant]
     Active Substance: FUROSEMIDE
  7. LORAZEPAM [Concomitant]
     Active Substance: LORAZEPAM
  8. ELTROMBOPAG OLAMINE [Concomitant]
     Active Substance: ELTROMBOPAG OLAMINE
  9. ACUPAN [Concomitant]
     Active Substance: NEFOPAM HYDROCHLORIDE

REACTIONS (2)
  - Cholestatic liver injury [Recovered/Resolved]
  - Off label use [Unknown]

NARRATIVE: CASE EVENT DATE: 20210517
